FAERS Safety Report 16640464 (Version 1)
Quarter: 2019Q3

REPORT INFORMATION
  Report Type: Spontaneous
  Country: AT (occurrence: AT)
  Receive Date: 20190729
  Receipt Date: 20190729
  Transmission Date: 20191004
  Serious: Yes (Other)
  Sender: FDA-Public Use
  Company Number: AT-AMGEN-AUTSP2019118083

PATIENT
  Age: 45 Year
  Sex: Male
  Weight: 60 kg

DRUGS (4)
  1. 5-ASA [Concomitant]
     Active Substance: MESALAMINE
     Dosage: UNK
  2. ADALIMUMAB [Suspect]
     Active Substance: ADALIMUMAB
     Indication: PRODUCT USED FOR UNKNOWN INDICATION
     Dosage: UNK
     Route: 065
  3. AZATHIOPRINE. [Concomitant]
     Active Substance: AZATHIOPRINE
     Dosage: UNK
  4. TEDUGLUTIDE [Concomitant]
     Active Substance: TEDUGLUTIDE
     Indication: SHORT-BOWEL SYNDROME
     Dosage: UNK

REACTIONS (2)
  - Enterocutaneous fistula [Unknown]
  - Intestinal stenosis [Unknown]
